FAERS Safety Report 7676575-6 (Version None)
Quarter: 2011Q3

REPORT INFORMATION
  Report Type: 
  Country: None (occurrence: None)
  Receive Date: 20110805
  Receipt Date: 20110722
  Transmission Date: 20111222
  Serious: No
  Sender: FDA-Public Use
  Company Number: TCI2011A04169

PATIENT
  Sex: 0

DRUGS (1)
  1. ACTOS [Suspect]
     Indication: DIABETES MELLITUS
     Dosage: PER ORAL
     Route: 048
     Dates: end: 20101201

REACTIONS (2)
  - BLADDER CANCER [None]
  - HAEMATURIA [None]
